FAERS Safety Report 5008558-9 (Version None)
Quarter: 2006Q2

REPORT INFORMATION
  Report Type: 
  Country: None (occurrence: None)
  Receive Date: 20060523
  Receipt Date: 20060508
  Transmission Date: 20061013
  Serious: Yes (Hospitalization)
  Sender: FDA-Public Use
  Company Number: JP-MERCK-0605USA01513

PATIENT
  Age: 81 Year
  Sex: Male

DRUGS (16)
  1. FOSAMAX [Suspect]
     Indication: OSTEOPOROSIS
     Route: 048
     Dates: start: 20050513, end: 20060501
  2. CONIEL [Concomitant]
     Indication: HYPERTENSION
     Route: 048
     Dates: start: 20050516
  3. OLMETIC [Concomitant]
     Indication: HYPERTENSION
     Route: 048
     Dates: start: 20050516
  4. TAKEPRON [Concomitant]
     Route: 048
  5. DASEN [Concomitant]
     Route: 048
     Dates: start: 20050707
  6. PRORENAL [Concomitant]
     Indication: LUMBAR SPINAL STENOSIS
     Route: 065
     Dates: start: 20060113, end: 20060501
  7. MAGNESIUM OXIDE [Concomitant]
     Route: 065
     Dates: start: 20060420
  8. PURSENNID [Concomitant]
     Route: 065
     Dates: start: 20060420
  9. [THERAPY UNSPECIFIED] [Concomitant]
     Route: 065
     Dates: start: 20060420, end: 20060424
  10. MEDICON [Concomitant]
     Route: 065
     Dates: start: 20060420, end: 20060424
  11. [THERAPY UNSPECIFIED] [Concomitant]
     Route: 065
     Dates: start: 20060420, end: 20060424
  12. ETODOLAC [Concomitant]
     Indication: LUMBAR SPINAL STENOSIS
     Route: 065
     Dates: start: 20060115, end: 20060420
  13. GASMOTIN [Concomitant]
     Indication: LUMBAR SPINAL STENOSIS
     Route: 065
     Dates: start: 20060115, end: 20060420
  14. CYANOCOBALAMIN [Concomitant]
     Indication: LUMBAR SPINAL STENOSIS
     Route: 065
     Dates: start: 20060115, end: 20060420
  15. NEUROTROPIN [Concomitant]
     Route: 065
     Dates: start: 20060215, end: 20060420
  16. DEPAS [Concomitant]
     Route: 065
     Dates: start: 20060215, end: 20060420

REACTIONS (5)
  - ALANINE AMINOTRANSFERASE INCREASED [None]
  - ASPARTATE AMINOTRANSFERASE INCREASED [None]
  - BLOOD LACTATE DEHYDROGENASE INCREASED [None]
  - LIVER DISORDER [None]
  - URTICARIA [None]
